FAERS Safety Report 9503119 (Version 2)
Quarter: 2013Q3

REPORT INFORMATION
  Report Type: Spontaneous
  Country: US (occurrence: US)
  Receive Date: 20130906
  Receipt Date: 20130910
  Transmission Date: 20140515
  Serious: Yes (Other)
  Sender: FDA-Public Use
  Company Number: US-SANOFI-AVENTIS-2013SA088932

PATIENT
  Age: 86 Year
  Sex: Female

DRUGS (3)
  1. LANTUS SOLOSTAR [Suspect]
     Indication: TYPE 2 DIABETES MELLITUS
     Dosage: 18-20 UNITS DOSE:20 UNIT(S)
     Route: 058
  2. COUMADIN [Suspect]
     Route: 065
  3. SOLOSTAR [Concomitant]
     Indication: TYPE 2 DIABETES MELLITUS

REACTIONS (8)
  - Haemorrhage [Unknown]
  - Blood iron decreased [Unknown]
  - Blood glucose decreased [Unknown]
  - Tremor [Unknown]
  - Hyperhidrosis [Unknown]
  - Gait disturbance [Unknown]
  - Blood glucose increased [Unknown]
  - Drug dose omission [Unknown]
